FAERS Safety Report 12688379 (Version 1)
Quarter: 2016Q3

REPORT INFORMATION
  Report Type: Spontaneous
  Country: US (occurrence: US)
  Receive Date: 20160825
  Receipt Date: 20160825
  Transmission Date: 20161109
  Serious: No
  Sender: FDA-Public Use
  Company Number: US-BAYER-2016-155406

PATIENT
  Age: 67 Year
  Sex: Male
  Weight: 72.56 kg

DRUGS (4)
  1. MIRALAX [Suspect]
     Active Substance: POLYETHYLENE GLYCOL 3350
     Indication: IRRITABLE BOWEL SYNDROME
     Dosage: UNK
     Route: 048
  2. ZYRTEC [Concomitant]
     Active Substance: CETIRIZINE HYDROCHLORIDE
     Dosage: UNK
  3. VALIUM [Concomitant]
     Active Substance: DIAZEPAM
     Dosage: UNK
  4. PHILLIPS^ FIBER GOOD GUMMIES [Suspect]
     Active Substance: INULIN
     Indication: NUTRITIONAL SUPPLEMENTATION
     Dosage: 2 DF, ONCE
     Route: 048
     Dates: start: 20160807

REACTIONS (4)
  - Abdominal distension [None]
  - Product use issue [None]
  - Wrong technique in product usage process [None]
  - Circumstance or information capable of leading to medication error [None]

NARRATIVE: CASE EVENT DATE: 20160807
